FAERS Safety Report 9130783 (Version 15)
Quarter: 2014Q1

REPORT INFORMATION
  Report Type: Report from Study
  Country: CA (occurrence: CA)
  Receive Date: 20130301
  Receipt Date: 20140116
  Transmission Date: 20141002
  Serious: Yes (Death, Hospitalization, Other)
  Sender: FDA-Public Use
  Company Number: PHHY2011CA74743

PATIENT
  Age: 70 Year
  Sex: Male

DRUGS (5)
  1. SANDOSTATIN LAR [Suspect]
     Indication: CARCINOID TUMOUR
     Dosage: 20 MG, QMO
     Route: 030
     Dates: start: 20110720
  2. SANDOSTATIN LAR [Suspect]
     Dosage: 30 MG, EVERY 4 WEEKS
     Route: 030
  3. SANDOSTATIN LAR [Suspect]
     Dosage: 20 MG, QMO
     Route: 030
  4. SANDOSTATIN LAR [Suspect]
     Dosage: 30 MG, EVERY 4 WEEKS
     Route: 030
     Dates: end: 20131230
  5. PREDNISONE [Concomitant]
     Dosage: UNK UKN, UNK

REACTIONS (14)
  - Death [Fatal]
  - Pyrexia [Unknown]
  - Calculus bladder [Unknown]
  - Blood pressure increased [Unknown]
  - Ascites [Unknown]
  - Urinary tract infection [Unknown]
  - Oedema [Recovering/Resolving]
  - Abasia [Unknown]
  - Arthritis [Unknown]
  - Tongue discolouration [Unknown]
  - Fatigue [Unknown]
  - Alopecia [Unknown]
  - Asthenia [Unknown]
  - Abdominal discomfort [Unknown]
